FAERS Safety Report 6972307-5 (Version None)
Quarter: 2010Q3

REPORT INFORMATION
  Report Type: 
  Country: None (occurrence: None)
  Receive Date: 20100909
  Receipt Date: 20100827
  Transmission Date: 20110219
  Serious: Yes (Hospitalization, Other)
  Sender: FDA-Public Use
  Company Number: PHHY2010TW56969

PATIENT
  Sex: Female
  Weight: 48 kg

DRUGS (3)
  1. ALISKIREN/AMOLODIPINE BESYLATE/HYDROCHLOROTHIAZIDE [Suspect]
     Indication: HYPERTENSION
     Dosage: 150 MG, QD
     Route: 048
     Dates: start: 20100720, end: 20100831
  2. COLCHICINE [Concomitant]
     Indication: GOUT
     Dosage: 0.5 MG
  3. PLAVIX [Concomitant]
     Indication: CORONARY ARTERY DISEASE
     Dosage: 75 MG

REACTIONS (5)
  - NEPHROLITHIASIS [None]
  - RASH [None]
  - RENAL FAILURE ACUTE [None]
  - TOXIC SKIN ERUPTION [None]
  - URINARY TRACT INFECTION [None]
